FAERS Safety Report 20622054 (Version 1)
Quarter: 2022Q1

REPORT INFORMATION
  Report Type: Other
  Country: US (occurrence: None)
  Receive Date: 20220322
  Receipt Date: 20220322
  Transmission Date: 20220423
  Serious: Yes (Hospitalization)
  Sender: FDA-Public Use
  Company Number: US-ROCHE-3052765

PATIENT
  Age: 50 Year
  Sex: Female
  Weight: 59.020 kg

DRUGS (8)
  1. OCREVUS [Suspect]
     Active Substance: OCRELIZUMAB
     Indication: Multiple sclerosis relapse
     Dosage: ONGOING: NO
     Route: 042
     Dates: start: 2019
  2. COLCHICINE [Concomitant]
     Active Substance: COLCHICINE
     Dosage: TAKING FOR MANY YEARS; STARTED PRIOR TO OCREVUS INITIATION?ONGOING YES
     Route: 048
  3. GABAPENTIN [Concomitant]
     Active Substance: GABAPENTIN
     Dosage: STARTED 2 WEEKS AGO?ONGOING YES
     Route: 048
  4. ERGOCALCIFEROL [Concomitant]
     Active Substance: ERGOCALCIFEROL
     Dosage: ONGOING YES
     Route: 048
  5. PREDNISONE [Concomitant]
     Active Substance: PREDNISONE
  6. SOLU-MEDROL [Concomitant]
     Active Substance: METHYLPREDNISOLONE SODIUM SUCCINATE
  7. COPAXONE [Concomitant]
     Active Substance: GLATIRAMER ACETATE
  8. AUBAGIO [Concomitant]
     Active Substance: TERIFLUNOMIDE

REACTIONS (5)
  - COVID-19 [Not Recovered/Not Resolved]
  - Paralysis [Not Recovered/Not Resolved]
  - Hypotension [Not Recovered/Not Resolved]
  - Herpes simplex [Unknown]
  - Neuralgia [Unknown]

NARRATIVE: CASE EVENT DATE: 20211201
